FAERS Safety Report 6935942-6 (Version None)
Quarter: 2010Q3

REPORT INFORMATION
  Report Type: 
  Country: None (occurrence: None)
  Receive Date: 20100823
  Receipt Date: 20100810
  Transmission Date: 20110219
  Serious: Yes (Hospitalization)
  Sender: FDA-Public Use
  Company Number: US-ELI_LILLY_AND_COMPANY-US201008003193

PATIENT
  Age: 74 Year
  Sex: Female

DRUGS (3)
  1. HUMULIN 70/30 [Suspect]
     Indication: DIABETES MELLITUS
     Dosage: UNK, UNK
     Dates: start: 19920101
  2. GLUCOPHAGE [Concomitant]
  3. VISTARIL [Concomitant]

REACTIONS (5)
  - ANORECTAL DISORDER [None]
  - CONSTIPATION [None]
  - HEPATIC ENZYME ABNORMAL [None]
  - HYPERTENSION [None]
  - PRURITUS [None]
